FAERS Safety Report 24701235 (Version 1)
Quarter: 2024Q4

REPORT INFORMATION
  Report Type: Spontaneous
  Country: CH (occurrence: CH)
  Receive Date: 20241205
  Receipt Date: 20241205
  Transmission Date: 20250115
  Serious: Yes (Hospitalization, Other)
  Sender: ABBVIE
  Company Number: CH-ABBVIE-6026471

PATIENT
  Age: 39 Year
  Sex: Female
  Weight: 91 kg

DRUGS (7)
  1. HUMIRA [Suspect]
     Active Substance: ADALIMUMAB
     Indication: Axial spondyloarthritis
     Route: 058
     Dates: start: 202308, end: 202406
  2. HUMIRA [Suspect]
     Active Substance: ADALIMUMAB
     Route: 058
     Dates: start: 202406, end: 20241014
  3. HUMIRA [Suspect]
     Active Substance: ADALIMUMAB
     Route: 058
     Dates: start: 20241022
  4. METHOTREXATE [Concomitant]
     Active Substance: METHOTREXATE
     Indication: Axial spondyloarthritis
     Dates: start: 202311, end: 202406
  5. TACROLIMUS [Suspect]
     Active Substance: TACROLIMUS
     Indication: Axial spondyloarthritis
     Dosage: FREQUENCY TEXT: EVERY 12H
     Route: 048
     Dates: start: 20240909, end: 20241008
  6. VIMOVO [Concomitant]
     Active Substance: ESOMEPRAZOLE MAGNESIUM\NAPROXEN
     Indication: Axial spondyloarthritis
     Dosage: 500 MG-20 MG FILM-COATED TABLET, FREQUENCY TEXT: AS REQUIRED MAXIMUM/24 HOURS: 2 TIMES
  7. SULFASALAZINE [Concomitant]
     Active Substance: SULFASALAZINE
     Indication: Axial spondyloarthritis
     Dosage: FREQUENCY TEXT: PER DAY
     Dates: start: 202406, end: 20240909

REACTIONS (8)
  - Asthenia [Recovering/Resolving]
  - Breast disorder [Not Recovered/Not Resolved]
  - Unevaluable event [Unknown]
  - Thyroid disorder [Not Recovered/Not Resolved]
  - Pyrexia [Recovered/Resolved]
  - Tachycardia [Recovering/Resolving]
  - Drug ineffective [Unknown]
  - Dermoid cyst [Not Recovered/Not Resolved]

NARRATIVE: CASE EVENT DATE: 20241007
